FAERS Safety Report 17507590 (Version 1)
Quarter: 2020Q1

REPORT INFORMATION
  Report Type: Spontaneous
  Country: US (occurrence: US)
  Receive Date: 20200306
  Receipt Date: 20200306
  Transmission Date: 20200409
  Serious: No
  Sender: FDA-Public Use
  Company Number: US-AUROBINDO-AUR-APL-2019-037258

PATIENT
  Sex: Female

DRUGS (1)
  1. LEVETIRACETAM TABLETS 250 MG [Suspect]
     Active Substance: LEVETIRACETAM
     Indication: DYSKINESIA
     Dosage: UNK, TWO TIMES A DAY
     Route: 065

REACTIONS (1)
  - Dyskinesia [Unknown]
